FAERS Safety Report 13656593 (Version 3)
Quarter: 2017Q3

REPORT INFORMATION
  Report Type: Spontaneous
  Country: TR (occurrence: TR)
  Receive Date: 20170615
  Receipt Date: 20170705
  Transmission Date: 20171127
  Serious: Yes (Hospitalization, Other)
  Sender: FDA-Public Use
  Company Number: TR-PFIZER INC-2017255096

PATIENT
  Age: 31 Year
  Sex: Female

DRUGS (1)
  1. ADVIL [Suspect]
     Active Substance: IBUPROFEN
     Indication: HEADACHE
     Dosage: 200 MG, ONCE
     Dates: end: 20170608

REACTIONS (5)
  - Hypoaesthesia oral [Unknown]
  - Anaphylactic shock [Recovered/Resolved]
  - Pruritus [Unknown]
  - Lip swelling [Unknown]
  - Dyspnoea [Unknown]

NARRATIVE: CASE EVENT DATE: 20170608
